FAERS Safety Report 5846049-3 (Version None)
Quarter: 2008Q3

REPORT INFORMATION
  Report Type: 
  Country: None (occurrence: None)
  Receive Date: 20080813
  Receipt Date: 20080811
  Transmission Date: 20090109
  Serious: Yes (Other)
  Sender: FDA-Public Use
  Company Number: CERZ-1000307

PATIENT
  Age: 65 Year
  Sex: Female
  Weight: 59.5 kg

DRUGS (2)
  1. CEREZYME [Suspect]
     Indication: GAUCHER'S DISEASE
     Dosage: 53.8 U/KG, QOW, INTRAVENOUS
     Route: 042
  2. ATIVAN [Concomitant]

REACTIONS (1)
  - BREAST CANCER FEMALE [None]
